FAERS Safety Report 5094140-4 (Version None)
Quarter: 2006Q3

REPORT INFORMATION
  Report Type: 
  Country: None (occurrence: None)
  Receive Date: 20060831
  Receipt Date: 20060821
  Transmission Date: 20061208
  Serious: Yes (Other)
  Sender: FDA-Public Use
  Company Number: US-JNJFOC-20060804784

PATIENT
  Age: 14 Month

DRUGS (1)
  1. ORTHO TRI-CYCLEN [Suspect]
     Indication: DRUG EXPOSURE VIA BREAST MILK
     Route: 063

REACTIONS (4)
  - DRUG EXPOSURE VIA BREAST MILK [None]
  - IMMUNODEFICIENCY [None]
  - WHITE BLOOD CELL COUNT INCREASED [None]
  - WHITE BLOOD CELL DISORDER [None]
